FAERS Safety Report 11261252 (Version 1)
Quarter: 2015Q3

REPORT INFORMATION
  Report Type: Spontaneous
  Country: US (occurrence: US)
  Receive Date: 20150710
  Receipt Date: 20150710
  Transmission Date: 20151125
  Serious: No
  Sender: FDA-Public Use
  Company Number: US-PURDUE-USA-2015-0120775

PATIENT
  Age: 59 Year
  Sex: Male
  Weight: 76.64 kg

DRUGS (1)
  1. BUTRANS [Suspect]
     Active Substance: BUPRENORPHINE
     Indication: PAIN
     Dosage: 15 MCG/HR, WEEKLY
     Route: 062
     Dates: start: 20150109, end: 20150209

REACTIONS (1)
  - Application site rash [Unknown]

NARRATIVE: CASE EVENT DATE: 20150112
